FAERS Safety Report 6169195-6 (Version None)
Quarter: 2009Q2

REPORT INFORMATION
  Report Type: 
  Country: None (occurrence: None)
  Receive Date: 20090424
  Receipt Date: 20090205
  Transmission Date: 20091009
  Serious: No
  Sender: FDA-Public Use
  Company Number: ALL1-2009-00503

PATIENT
  Age: 11 Year
  Sex: Male

DRUGS (1)
  1. VYVANSE [Suspect]
     Dosage: 70 MG, 1X/DAY QD, ORAL; 100 MG, 1X/DAY QD, ORAL
     Route: 048
     Dates: start: 20070101

REACTIONS (3)
  - BODY HEIGHT INCREASED [None]
  - DRUG EFFECT DECREASED [None]
  - OVERDOSE [None]
